FAERS Safety Report 11635514 (Version 1)
Quarter: 2015Q4

REPORT INFORMATION
  Report Type: Spontaneous
  Country: US (occurrence: None)
  Receive Date: 20151015
  Receipt Date: 20151015
  Transmission Date: 20160304
  Serious: Yes (Disabling)
  Sender: FDA-Public Use
  Company Number: None

PATIENT
  Age: 65 Year
  Sex: Female
  Weight: 90.72 kg

DRUGS (9)
  1. GALANGAL [Concomitant]
  2. DMSO [Concomitant]
     Active Substance: DIMETHYL SULFOXIDE
  3. DISTILLED WATER [Concomitant]
  4. CHAPARRAL [Concomitant]
     Active Substance: LARREA TRIDENTATA TOP
  5. ZINC CHLORIDE [Concomitant]
     Active Substance: ZINC CHLORIDE
  6. COCONUT OIL [Concomitant]
     Active Substance: COCONUT OIL
  7. GRAVIOLA [Concomitant]
  8. BLACK SALVE [Suspect]
     Active Substance: HERBALS\ZINC CHLORIDE
     Dates: start: 20150814, end: 20150819
  9. BLOODROOT [Concomitant]

REACTIONS (2)
  - Scar [None]
  - Skin necrosis [None]

NARRATIVE: CASE EVENT DATE: 20150817
